FAERS Safety Report 15992616 (Version 5)
Quarter: 2020Q2

REPORT INFORMATION
  Report Type: Report from Study
  Country: US (occurrence: US)
  Receive Date: 20190221
  Receipt Date: 20200527
  Transmission Date: 20200713
  Serious: Yes (Hospitalization)
  Sender: FDA-Public Use
  Company Number: US-ACTELION-A-US2018-172952

PATIENT
  Age: 66 Year
  Sex: Female
  Weight: 71.66 kg

DRUGS (12)
  1. SPIRONOLACTONE. [Concomitant]
     Active Substance: SPIRONOLACTONE
  2. SOTALOL. [Concomitant]
     Active Substance: SOTALOL
  3. POTASSIUM [Concomitant]
     Active Substance: POTASSIUM
  4. OPSUMIT [Suspect]
     Active Substance: MACITENTAN
     Indication: PULMONARY ARTERIAL HYPERTENSION
     Dosage: 10 MG, QD
     Route: 048
     Dates: start: 20171209
  5. TRESIBA [Concomitant]
     Active Substance: INSULIN DEGLUDEC
  6. OMEPRAZOLE. [Concomitant]
     Active Substance: OMEPRAZOLE
  7. METOPROLOL. [Concomitant]
     Active Substance: METOPROLOL
  8. METFORMIN [Concomitant]
     Active Substance: METFORMIN HYDROCHLORIDE
  9. LASIX [Concomitant]
     Active Substance: FUROSEMIDE
  10. HUMALOG [Concomitant]
     Active Substance: INSULIN LISPRO
  11. ELIQUIS [Concomitant]
     Active Substance: APIXABAN
  12. SILDENAFIL. [Concomitant]
     Active Substance: SILDENAFIL

REACTIONS (9)
  - Muscle spasms [Not Recovered/Not Resolved]
  - Pain in extremity [Not Recovered/Not Resolved]
  - Endodontic procedure [Unknown]
  - Cerebrovascular accident [Unknown]
  - Hospitalisation [Unknown]
  - Nasopharyngitis [Not Recovered/Not Resolved]
  - Gout [Unknown]
  - Pain [Not Recovered/Not Resolved]
  - Influenza [Unknown]

NARRATIVE: CASE EVENT DATE: 20190115
